FAERS Safety Report 17337925 (Version 1)
Quarter: 2020Q1

REPORT INFORMATION
  Report Type: Other
  Country: IE (occurrence: IE)
  Receive Date: 20200129
  Receipt Date: 20200129
  Transmission Date: 20200409
  Serious: Yes (Life-Threatening, Disabling, Other)
  Sender: FDA-Public Use
  Company Number: IE-CELLTRION INC.-2020IE018362

PATIENT

DRUGS (1)
  1. TRUXIMA [Suspect]
     Active Substance: RITUXIMAB-ABBS
     Indication: LYMPHOMA
     Dosage: 690 MG, EVERY 2 MONTHS
     Route: 042
     Dates: start: 201910

REACTIONS (3)
  - Colitis [Not Recovered/Not Resolved]
  - Diarrhoea [Not Recovered/Not Resolved]
  - Product substitution issue [Not Recovered/Not Resolved]

NARRATIVE: CASE EVENT DATE: 201910
